FAERS Safety Report 24867956 (Version 1)
Quarter: 2025Q1

REPORT INFORMATION
  Report Type: Spontaneous
  Country: US (occurrence: US)
  Receive Date: 20250121
  Receipt Date: 20250121
  Transmission Date: 20250409
  Serious: No
  Sender: NOVARTIS
  Company Number: US-002147023-NVSC2025US010313

PATIENT
  Age: 32 Year
  Sex: Female
  Weight: 126.98 kg

DRUGS (1)
  1. PROMACTA [Suspect]
     Active Substance: ELTROMBOPAG OLAMINE
     Indication: Immune thrombocytopenia
     Dosage: 50 MG, QD (TAKE 50 MG BY MOUTH EVERY MORNING BEFORE BREAKFAST)
     Route: 065
     Dates: start: 20240829

REACTIONS (3)
  - Fatigue [Unknown]
  - Epistaxis [Unknown]
  - Product dose omission issue [Unknown]

NARRATIVE: CASE EVENT DATE: 20250119
